FAERS Safety Report 6610292-6 (Version None)
Quarter: 2010Q1

REPORT INFORMATION
  Report Type: 
  Country: None (occurrence: None)
  Receive Date: 20100302
  Receipt Date: 20091006
  Transmission Date: 20100710
  Serious: No
  Sender: FDA-Public Use
  Company Number: US-TYCO HEALTHCARE/MALLINCKRODT-T200901884

PATIENT

DRUGS (2)
  1. TECHNESCAN [Suspect]
     Dosage: UNK
     Route: 042
  2. TECHNETIUM TC-99M [Suspect]
     Dosage: UNK

REACTIONS (1)
  - LIP SWELLING [None]
